FAERS Safety Report 11250344 (Version 2)
Quarter: 2015Q3

REPORT INFORMATION
  Report Type: Spontaneous
  Country: US (occurrence: US)
  Receive Date: 20150708
  Receipt Date: 20150803
  Transmission Date: 20151125
  Serious: No
  Sender: FDA-Public Use
  Company Number: US-ELI_LILLY_AND_COMPANY-US201008007959

PATIENT
  Sex: Female

DRUGS (4)
  1. ZYPREXA RELPREVV [Suspect]
     Active Substance: OLANZAPINE PAMOATE
     Dosage: 300 MG, UNK
     Route: 030
     Dates: start: 20100727, end: 20100825
  2. DILANTIN [Concomitant]
     Active Substance: PHENYTOIN
     Indication: SEIZURE
     Dosage: 400 MG, QD
  3. DEPAKOTE [Concomitant]
     Active Substance: DIVALPROEX SODIUM
     Indication: AFFECTIVE DISORDER
     Dosage: 500 MG, QID
  4. PAROXETINE [Concomitant]
     Active Substance: PAROXETINE\PAROXETINE HYDROCHLORIDE
     Indication: DEPRESSION
     Dosage: 20 MG, QD
     Dates: start: 20100810

REACTIONS (7)
  - Speech disorder [Recovered/Resolved]
  - Drug ineffective [Recovered/Resolved]
  - Anger [Recovered/Resolved]
  - Malaise [Recovered/Resolved]
  - Abnormal behaviour [Recovered/Resolved]
  - Vomiting [Unknown]
  - Aggression [Recovered/Resolved]
